FAERS Safety Report 16371231 (Version 1)
Quarter: 2019Q3

REPORT INFORMATION
  Report Type: Spontaneous
  Country: US (occurrence: US)
  Receive Date: 20190529
  Receipt Date: 20190529
  Transmission Date: 20191004
  Serious: Yes (Other)
  Sender: FDA-Public Use
  Company Number: None

PATIENT
  Age: 68 Year
  Sex: Female
  Weight: 61.29 kg

DRUGS (1)
  1. CAPCETABINE [Suspect]
     Active Substance: CAPECITABINE
     Indication: BREAST CANCER FEMALE
     Dosage: ?          OTHER FREQUENCY:TAKES FOR 2 WEEKS;?
     Route: 048
     Dates: start: 20190218

REACTIONS (2)
  - Visual impairment [None]
  - Anxiety [None]

NARRATIVE: CASE EVENT DATE: 20190529
